FAERS Safety Report 10562893 (Version 1)
Quarter: 2014Q4

REPORT INFORMATION
  Report Type: Spontaneous
  Country: US (occurrence: None)
  Receive Date: 20141103
  Receipt Date: 20141103
  Transmission Date: 20150529
  Serious: No
  Sender: FDA-Public Use
  Company Number: None

PATIENT
  Age: 84 Year
  Sex: Female

DRUGS (1)
  1. HUMIRA [Suspect]
     Active Substance: ADALIMUMAB
     Indication: COLITIS ULCERATIVE
     Dosage: 40 MG DAY 29 EVERY TWO WEEKS SUBCUTANEOUSLY
     Route: 058
     Dates: start: 20140115

REACTIONS (4)
  - Pneumonia [None]
  - Peritonitis [None]
  - Urinary tract infection [None]
  - Surgery [None]

NARRATIVE: CASE EVENT DATE: 20141028
